FAERS Safety Report 11029956 (Version 1)
Quarter: 2015Q2

REPORT INFORMATION
  Report Type: Spontaneous
  Country: US (occurrence: US)
  Receive Date: 20150415
  Receipt Date: 20150415
  Transmission Date: 20150821
  Serious: Yes (Other)
  Sender: FDA-Public Use
  Company Number: US-CELGENE-USA-2015040139

PATIENT

DRUGS (7)
  1. VIDAZA [Suspect]
     Active Substance: AZACITIDINE
     Indication: RECURRENT CANCER
     Route: 041
  2. VIDAZA [Suspect]
     Active Substance: AZACITIDINE
     Route: 065
  3. OXALIPLATIN. [Suspect]
     Active Substance: OXALIPLATIN
     Route: 041
  4. OXALIPLATIN. [Suspect]
     Active Substance: OXALIPLATIN
     Route: 041
  5. VIDAZA [Suspect]
     Active Substance: AZACITIDINE
     Route: 065
  6. VIDAZA [Suspect]
     Active Substance: AZACITIDINE
     Route: 065
  7. OXALIPLATIN. [Suspect]
     Active Substance: OXALIPLATIN
     Indication: RECURRENT CANCER
     Route: 041

REACTIONS (23)
  - Fatigue [Unknown]
  - Hypoalbuminaemia [Unknown]
  - Alanine aminotransferase increased [Unknown]
  - Hypokalaemia [Unknown]
  - Hyperkalaemia [Unknown]
  - Dyspnoea [Unknown]
  - Blood creatinine increased [Unknown]
  - Thrombocytopenia [Unknown]
  - Hyponatraemia [Unknown]
  - Aspartate aminotransferase increased [Unknown]
  - Nausea [Unknown]
  - Hypomagnesaemia [Unknown]
  - Neuropathy peripheral [Unknown]
  - Constipation [Unknown]
  - Anaemia [Unknown]
  - Neutropenia [Unknown]
  - Leukopenia [Unknown]
  - Disease progression [Unknown]
  - Vomiting [Unknown]
  - Lymphopenia [Unknown]
  - Hypocalcaemia [Unknown]
  - Blood alkaline phosphatase increased [Unknown]
  - Diarrhoea [Unknown]
